FAERS Safety Report 8475417-9 (Version None)
Quarter: 2012Q2

REPORT INFORMATION
  Report Type: 
  Country: None (occurrence: None)
  Receive Date: 20120628
  Receipt Date: 20120618
  Transmission Date: 20120825
  Serious: Yes (Hospitalization)
  Sender: FDA-Public Use
  Company Number: FR-ROCHE-1079206

PATIENT
  Age: 71 Year
  Sex: Male

DRUGS (10)
  1. ARICEPT [Concomitant]
  2. MEMANTINE HYDROCHLORIDE [Concomitant]
  3. ASPIRIN [Concomitant]
  4. ROCEPHIN [Suspect]
     Indication: LUNG DISORDER
     Route: 030
     Dates: start: 20120302, end: 20120309
  5. PRAZEPAM [Concomitant]
  6. TANAKAN (FRANCE) [Concomitant]
  7. ZOLPIDEM [Concomitant]
  8. SIMVASTATIN [Concomitant]
  9. ATACAND [Concomitant]
  10. LEVOFLOXACIN [Suspect]
     Indication: LUNG DISORDER
     Route: 048
     Dates: start: 20120308, end: 20120318

REACTIONS (5)
  - RENAL FAILURE ACUTE [None]
  - METABOLIC ACIDOSIS [None]
  - CLOSTRIDIUM DIFFICILE COLITIS [None]
  - LACTIC ACIDOSIS [None]
  - ENCEPHALOPATHY [None]
